FAERS Safety Report 12691615 (Version 1)
Quarter: 2016Q3

REPORT INFORMATION
  Report Type: Report from Study
  Country: US (occurrence: US)
  Receive Date: 20160826
  Receipt Date: 20160826
  Transmission Date: 20161109
  Serious: Yes (Hospitalization)
  Sender: FDA-Public Use
  Company Number: US-ABBVIE-16K-163-1706733-00

PATIENT
  Sex: Female
  Weight: 81.72 kg

DRUGS (1)
  1. HUMIRA [Suspect]
     Active Substance: ADALIMUMAB
     Indication: PSORIASIS
     Route: 058
     Dates: start: 2014, end: 201602

REACTIONS (3)
  - Drug ineffective [Not Recovered/Not Resolved]
  - Immunodeficiency [Recovering/Resolving]
  - Dyspnoea [Recovered/Resolved]

NARRATIVE: CASE EVENT DATE: 2016
